FAERS Safety Report 8984783 (Version 2)
Quarter: 2013Q1

REPORT INFORMATION
  Report Type: Spontaneous
  Country: US (occurrence: US)
  Receive Date: 20121225
  Receipt Date: 20130221
  Transmission Date: 20140127
  Serious: Yes (Other)
  Sender: FDA-Public Use
  Company Number: US-JNJFOC-20121208737

PATIENT
  Sex: 0

DRUGS (2)
  1. RILPIVIRINE HYDROCHLORIDE [Suspect]
     Indication: HIV INFECTION
     Route: 048
  2. UNSPECIFIED MEDICATIONS [Interacting]
     Indication: HIV INFECTION

REACTIONS (9)
  - Electrocardiogram QT prolonged [Unknown]
  - Depression [Unknown]
  - Adrenal insufficiency [Unknown]
  - Rash [Unknown]
  - Virologic failure [Unknown]
  - Drug interaction [Unknown]
  - Dizziness [Unknown]
  - Blood creatinine increased [Unknown]
  - Cholelithiasis [Unknown]
